FAERS Safety Report 4808451-8 (Version None)
Quarter: 2005Q4

REPORT INFORMATION
  Report Type: 
  Country: None (occurrence: None)
  Receive Date: 20051021
  Receipt Date: 20050622
  Transmission Date: 20060501
  Serious: Yes (Hospitalization)
  Sender: FDA-Public Use
  Company Number: FR_050606690

PATIENT
  Age: 26 Year
  Sex: Female

DRUGS (4)
  1. ZYPREXA [Suspect]
     Indication: DELIRIUM
     Dosage: 20 MG DAY
     Dates: start: 20050524, end: 20050606
  2. NOZINAN (LEVOMEPROMAZINE HYDROCHLORIDE) [Concomitant]
  3. DEPAKOTE [Concomitant]
  4. SOLIAN (AMISULPRIDE) [Concomitant]

REACTIONS (2)
  - ISCHAEMIC STROKE [None]
  - PULMONARY EMBOLISM [None]
